FAERS Safety Report 12328689 (Version 1)
Quarter: 2016Q2

REPORT INFORMATION
  Report Type: Spontaneous
  Country: US (occurrence: US)
  Receive Date: 20160503
  Receipt Date: 20160503
  Transmission Date: 20160815
  Serious: No
  Sender: FDA-Public Use
  Company Number: US-BEH-2015050183

PATIENT
  Sex: Female
  Weight: 63 kg

DRUGS (21)
  1. PREDNISONE. [Concomitant]
     Active Substance: PREDNISONE
  2. CALCIUM [Concomitant]
     Active Substance: CALCIUM
  3. LIDOCAINE/PRILOCAINE [Concomitant]
  4. QVAR 40MCG AER W/ADAP [Concomitant]
  5. XOPENEX 0.63 MG/3ML VIAL-NEB [Concomitant]
  6. OMEPRAZOLE. [Concomitant]
     Active Substance: OMEPRAZOLE
  7. TYLENOL [Concomitant]
     Active Substance: ACETAMINOPHEN
  8. EPIPEN AUTOINJECTOR [Concomitant]
  9. NUTROPIN AQ 10MG/2ML CARTRIDGE [Concomitant]
  10. BENADRYL [Concomitant]
     Active Substance: DIPHENHYDRAMINE HYDROCHLORIDE
  11. HIZENTRA [Suspect]
     Active Substance: HUMAN IMMUNOGLOBULIN G
     Indication: HYPOGAMMAGLOBULINAEMIA
     Dosage: HIZENTRA 4 GM
     Route: 058
  12. PROAIR HFA [Concomitant]
     Active Substance: ALBUTEROL SULFATE
  13. ACETAMINOPHEN. [Concomitant]
     Active Substance: ACETAMINOPHEN
  14. ZYRTEC 10 MG CAPSULE [Concomitant]
  15. VITAMIN D3 [Concomitant]
     Active Substance: CHOLECALCIFEROL
  16. SERTRALINE [Concomitant]
     Active Substance: SERTRALINE HYDROCHLORIDE
  17. SINGULAIR 10 MG TABLET [Concomitant]
  18. FLUTICASONE PROPIONATE. [Concomitant]
     Active Substance: FLUTICASONE PROPIONATE
  19. TRAMADOL. [Concomitant]
     Active Substance: TRAMADOL
  20. DIPHENHYDRAMINE. [Concomitant]
     Active Substance: DIPHENHYDRAMINE
  21. ALPRAZOLAM 0.5 GM TABLET [Concomitant]

REACTIONS (3)
  - Oral mucosal blistering [Unknown]
  - Musculoskeletal stiffness [Unknown]
  - Headache [Unknown]
